FAERS Safety Report 6790656-0 (Version None)
Quarter: 2010Q2

REPORT INFORMATION
  Report Type: 
  Country: None (occurrence: None)
  Receive Date: 20100624
  Receipt Date: 20100611
  Transmission Date: 20101027
  Serious: Yes (Death, Hospitalization, Other)
  Sender: FDA-Public Use
  Company Number: US-TEVA-233740USA

PATIENT
  Sex: Female

DRUGS (12)
  1. AZILECT [Suspect]
     Indication: PARKINSON'S DISEASE
     Route: 048
     Dates: start: 20090801
  2. CYCLOBENZAPRINE [Interacting]
     Indication: NECK PAIN
     Dates: start: 20100301, end: 20100331
  3. SINEMET [Concomitant]
  4. ROPINIROLE HYDROCHLORIDE [Concomitant]
  5. CETIRIZINE HYDROCHLORIDE [Concomitant]
  6. CLONAZEPAM [Concomitant]
  7. FLUCONAZOLE [Concomitant]
  8. LEVOTHYROXINE SODIUM [Concomitant]
  9. LISINOPRIL [Concomitant]
  10. METOPROLOL SUCCINATE [Concomitant]
  11. TYLOX [Concomitant]
  12. TOLTERODINE [Concomitant]

REACTIONS (3)
  - DRUG INTERACTION [None]
  - POST PROCEDURAL COMPLICATION [None]
  - SPINAL DISORDER [None]
